FAERS Safety Report 22285019 (Version 1)
Quarter: 2023Q2

REPORT INFORMATION
  Report Type: Spontaneous
  Country: GR (occurrence: GR)
  Receive Date: 20230504
  Receipt Date: 20230504
  Transmission Date: 20230721
  Serious: Yes (Life-Threatening, Other)
  Sender: FDA-Public Use
  Company Number: None

PATIENT
  Age: 55 Year
  Sex: Male
  Weight: 100 kg

DRUGS (3)
  1. CIPROFLOXACIN [Suspect]
     Active Substance: CIPROFLOXACIN
     Indication: Urinary tract infection
     Dosage: 500 MG TWICE A DAY
     Route: 048
     Dates: start: 20230321, end: 20230329
  2. LIPITOR [Concomitant]
     Active Substance: ATORVASTATIN CALCIUM
     Indication: Dyslipidaemia
     Dosage: 10 MG ONCE A DAY
     Route: 048
     Dates: start: 20200401, end: 20230331
  3. MEDITHYROX [Concomitant]
     Indication: Hypothyroidism
     Dosage: 50 MCG TWICE A DAY
     Route: 048
     Dates: start: 20200401, end: 20230331

REACTIONS (2)
  - Jaundice cholestatic [Recovering/Resolving]
  - Hepatitis acute [Recovering/Resolving]

NARRATIVE: CASE EVENT DATE: 20230329
